FAERS Safety Report 4728434-6 (Version None)
Quarter: 2005Q3

REPORT INFORMATION
  Report Type: 
  Country: None (occurrence: None)
  Receive Date: 20050729
  Receipt Date: 20050106
  Transmission Date: 20060218
  Serious: No
  Sender: FDA-Public Use
  Company Number: A030805038

PATIENT
  Age: 9 Year
  Sex: Male

DRUGS (2)
  1. ZANTAC [Suspect]
     Indication: MULTIPLE ALLERGIES
     Dosage: 15MG UNKNOWN
     Route: 048
  2. ZYRTEC [Suspect]
     Indication: DRUG USE FOR UNKNOWN INDICATION
     Route: 048

REACTIONS (2)
  - DRUG INEFFECTIVE [None]
  - MEDICATION ERROR [None]
